FAERS Safety Report 5619903-5 (Version None)
Quarter: 2008Q1

REPORT INFORMATION
  Report Type: 
  Country: None (occurrence: None)
  Receive Date: 20080208
  Receipt Date: 20071114
  Transmission Date: 20080703
  Serious: No
  Sender: FDA-Public Use
  Company Number: US-ABBOTT-07P-163-0424685-00

PATIENT
  Age: 36 Year
  Sex: Male
  Weight: 99.8 kg

DRUGS (2)
  1. VICODIN [Suspect]
     Indication: DRUG USE FOR UNKNOWN INDICATION
     Route: 048
     Dates: start: 20070920, end: 20070920
  2. THERAFLU SEVERE COLD [Suspect]
     Indication: DRUG USE FOR UNKNOWN INDICATION
     Route: 048
     Dates: start: 20070920, end: 20070920

REACTIONS (1)
  - DRUG ADMINISTRATION ERROR [None]
